FAERS Safety Report 19877087 (Version 1)
Quarter: 2021Q3

REPORT INFORMATION
  Report Type: Spontaneous
  Country: CN (occurrence: CN)
  Receive Date: 20210923
  Receipt Date: 20210923
  Transmission Date: 20211014
  Serious: Yes (Life-Threatening)
  Sender: FDA-Public Use
  Company Number: CN-BAYER-2021-213092

PATIENT
  Age: 46 Year
  Sex: Female
  Weight: 51 kg

DRUGS (2)
  1. YAZ [Suspect]
     Active Substance: DROSPIRENONE\ETHINYL ESTRADIOL
     Indication: ABNORMAL UTERINE BLEEDING
     Dosage: 1 DF, TID
     Route: 048
     Dates: start: 20210825, end: 20210826
  2. YAZ [Suspect]
     Active Substance: DROSPIRENONE\ETHINYL ESTRADIOL
     Indication: ABNORMAL UTERINE BLEEDING
     Dosage: 1 DF, BID
     Route: 048
     Dates: start: 20210827, end: 20210829

REACTIONS (7)
  - Migraine [Not Recovered/Not Resolved]
  - Off label use [None]
  - Dyspnoea [Not Recovered/Not Resolved]
  - Drug effective for unapproved indication [None]
  - Palpitations [Not Recovered/Not Resolved]
  - Swelling face [Not Recovered/Not Resolved]
  - Dizziness [Not Recovered/Not Resolved]

NARRATIVE: CASE EVENT DATE: 20210825
